FAERS Safety Report 4751270-1 (Version None)
Quarter: 2005Q3

REPORT INFORMATION
  Report Type: 
  Country: None (occurrence: None)
  Receive Date: 20050824
  Receipt Date: 20050816
  Transmission Date: 20060218
  Serious: Yes (Hospitalization)
  Sender: FDA-Public Use
  Company Number: DE-JNJFOC-20040505697

PATIENT
  Sex: Female

DRUGS (12)
  1. REMICADE [Suspect]
     Route: 042
  2. REMICADE [Suspect]
     Route: 042
  3. REMICADE [Suspect]
     Route: 042
  4. REMICADE [Suspect]
     Route: 042
  5. REMICADE [Suspect]
     Route: 042
  6. REMICADE [Suspect]
     Indication: RHEUMATOID ARTHRITIS
     Route: 042
  7. METHOTREXATE [Concomitant]
  8. METHOTREXATE [Concomitant]
  9. METHOTREXATE [Concomitant]
  10. METHOTREXATE [Concomitant]
  11. METHOTREXATE [Concomitant]
  12. METHOTREXATE [Concomitant]

REACTIONS (2)
  - ARTHRODESIS [None]
  - SYNOVECTOMY [None]
